FAERS Safety Report 4346542-9 (Version None)
Quarter: 2004Q2

REPORT INFORMATION
  Report Type: 
  Country: None (occurrence: None)
  Receive Date: 20040426
  Receipt Date: 20031216
  Transmission Date: 20050107
  Serious: No
  Sender: FDA-Public Use
  Company Number: US-BRISTOL-MYERS SQUIBB COMPANY-12459335

PATIENT
  Age: 53 Year
  Sex: Female
  Weight: 55 kg

DRUGS (7)
  1. PARAPLATIN [Suspect]
     Indication: BREAST CANCER
     Dosage: LOT #3H65131
     Dates: start: 20031216, end: 20031216
  2. TAXOL [Concomitant]
     Dates: start: 20031216, end: 20031216
  3. DECADRON [Concomitant]
     Indication: PREMEDICATION
     Route: 042
     Dates: start: 20031216
  4. ALOXI [Concomitant]
     Indication: PREMEDICATION
     Route: 042
     Dates: start: 20031216
  5. BENADRYL [Concomitant]
     Indication: PREMEDICATION
     Route: 042
     Dates: start: 20031216
  6. CIMETIDINE HCL [Concomitant]
     Indication: PREMEDICATION
     Route: 042
     Dates: start: 20031216
  7. INHALERS [Concomitant]
     Indication: ASTHMA

REACTIONS (1)
  - HYPERSENSITIVITY [None]
